FAERS Safety Report 6411911-X (Version None)
Quarter: 2009Q4

REPORT INFORMATION
  Report Type: 
  Country: None (occurrence: None)
  Receive Date: 20091023
  Receipt Date: 20091015
  Transmission Date: 20100525
  Serious: Yes (Other)
  Sender: FDA-Public Use
  Company Number: BR-PFIZER INC-2009249158

PATIENT
  Age: 67 Year

DRUGS (1)
  1. VIAGRA [Suspect]
     Indication: ERECTILE DYSFUNCTION
     Dosage: 100 MG, AS NEEDED
     Route: 048
     Dates: start: 20080101

REACTIONS (4)
  - BENIGN PROSTATIC HYPERPLASIA [None]
  - EJACULATION FAILURE [None]
  - ERECTILE DYSFUNCTION [None]
  - INFERTILITY MALE [None]
